FAERS Safety Report 5433632-2 (Version None)
Quarter: 2007Q3

REPORT INFORMATION
  Report Type: 
  Country: None (occurrence: None)
  Receive Date: 20070828
  Receipt Date: 20070828
  Transmission Date: 20080115
  Serious: Yes (Hospitalization)
  Sender: FDA-Public Use
  Company Number: None

PATIENT
  Age: 59 Year
  Sex: Male

DRUGS (2)
  1. VENLAFAXINE HCL [Suspect]
     Indication: DEPRESSION
     Dosage: 37.5MG EVERY DAY PO
     Route: 048
     Dates: start: 20070327, end: 20070330
  2. ZALEPLON [Suspect]
     Indication: INSOMNIA
     Dosage: 10MG HS PO
     Route: 048
     Dates: start: 20070329, end: 20070401

REACTIONS (2)
  - DIZZINESS [None]
  - PRESYNCOPE [None]
